FAERS Safety Report 7475198-1 (Version None)
Quarter: 2011Q2

REPORT INFORMATION
  Report Type: 
  Country: None (occurrence: None)
  Receive Date: 20110512
  Receipt Date: 20110503
  Transmission Date: 20111010
  Serious: Yes (Other)
  Sender: FDA-Public Use
  Company Number: IE-NOVOPROD-327111

PATIENT
  Sex: Male

DRUGS (7)
  1. CRESTOR [Concomitant]
     Dosage: 5 MG, QD
     Route: 048
  2. ASPIRIN [Concomitant]
     Dosage: 75 MG, QD
     Route: 048
  3. ACTOS [Concomitant]
     Dosage: 30 MG, QD
     Route: 048
  4. VICTOZA [Suspect]
     Indication: TYPE 2 DIABETES MELLITUS
     Dosage: 0.6 MG, QD
     Route: 058
     Dates: start: 20110119
  5. DIAMICRON [Concomitant]
     Dosage: 5 MG, QD
     Route: 048
  6. VICTOZA [Suspect]
     Dosage: 1.2 MG, QD
     Route: 058
     Dates: start: 20110126, end: 20110301
  7. GLUCOPHAGE [Concomitant]
     Dosage: 1000 MG, QD
     Route: 048

REACTIONS (2)
  - SUICIDAL IDEATION [None]
  - DEPRESSION [None]
